FAERS Safety Report 4889808-6 (Version None)
Quarter: 2006Q1

REPORT INFORMATION
  Report Type: 
  Country: None (occurrence: None)
  Receive Date: 20060124
  Receipt Date: 20051005
  Transmission Date: 20060701
  Serious: Yes (Death, Hospitalization)
  Sender: FDA-Public Use
  Company Number: US-MERCK-0510USA05505

PATIENT
  Age: 87 Year
  Sex: Female
  Weight: 61 kg

DRUGS (6)
  1. VIOXX [Suspect]
     Indication: ARTHRITIS
     Route: 048
     Dates: start: 19990101, end: 20030327
  2. TYLENOL (CAPLET) [Concomitant]
     Route: 065
  3. PLAVIX [Concomitant]
     Route: 065
  4. LANOXIN [Concomitant]
     Route: 065
  5. ARMOUR THYROID TABLETS [Concomitant]
     Route: 065
  6. HYOSCYAMINE [Concomitant]
     Route: 065

REACTIONS (6)
  - ATRIAL FIBRILLATION [None]
  - CARDIOVASCULAR DISORDER [None]
  - CEREBROVASCULAR ACCIDENT [None]
  - DIVERTICULITIS [None]
  - HAEMORRHAGIC STROKE [None]
  - HYPERTENSION [None]
